FAERS Safety Report 9880551 (Version 4)
Quarter: 2014Q1

REPORT INFORMATION
  Report Type: Spontaneous
  Country: JP (occurrence: JP)
  Receive Date: 20140207
  Receipt Date: 20140331
  Transmission Date: 20141002
  Serious: Yes (Hospitalization)
  Sender: FDA-Public Use
  Company Number: JP-JNJFOC-20131213541

PATIENT
  Age: 72 Year
  Sex: Female
  Weight: 59 kg

DRUGS (11)
  1. RISPERDAL [Suspect]
     Indication: SCHIZOPHRENIA
     Route: 048
     Dates: start: 20131205
  2. RISPERDAL [Suspect]
     Indication: SCHIZOPHRENIA
     Route: 048
     Dates: end: 20131202
  3. RHYTHMY [Suspect]
     Indication: PRODUCT USED FOR UNKNOWN INDICATION
     Route: 048
     Dates: end: 20131202
  4. WYPAX [Concomitant]
     Route: 048
     Dates: end: 20131202
  5. ALLOPURINOL [Concomitant]
     Route: 048
     Dates: end: 20131202
  6. SIMVASTATIN [Concomitant]
     Route: 048
     Dates: end: 20131202
  7. LAXOBERON [Concomitant]
     Route: 048
     Dates: end: 20131202
  8. SENNOSIDE [Concomitant]
     Route: 048
     Dates: end: 20131202
  9. SHINLUCK [Concomitant]
     Route: 048
     Dates: end: 20131202
  10. LOCHOL [Concomitant]
     Route: 048
     Dates: end: 20131202
  11. ASPARTATE POTASSIUM [Concomitant]
     Route: 048
     Dates: start: 20111205, end: 20131201

REACTIONS (3)
  - Shock [Recovered/Resolved]
  - Hypothermia [Recovered/Resolved]
  - Altered state of consciousness [Recovered/Resolved]
